FAERS Safety Report 7603275-0 (Version None)
Quarter: 2011Q3

REPORT INFORMATION
  Report Type: 
  Country: None (occurrence: None)
  Receive Date: 20110711
  Receipt Date: 20110711
  Transmission Date: 20111222
  Serious: Yes (Hospitalization)
  Sender: FDA-Public Use
  Company Number: None

PATIENT
  Sex: Female
  Weight: 78 kg

DRUGS (23)
  1. ADRIAMYCIN PFS [Suspect]
     Indication: BREAST CANCER
     Dosage: 109 MG QD WEEK X4 IV
     Route: 042
     Dates: start: 20110628
  2. ADRIAMYCIN PFS [Suspect]
     Indication: BREAST CANCER
     Dosage: 109 MG QD WEEK X4 IV
     Route: 042
     Dates: start: 20110531
  3. ADRIAMYCIN PFS [Suspect]
     Indication: BREAST CANCER
     Dosage: 109 MG QD WEEK X4 IV
     Route: 042
     Dates: start: 20110614
  4. ADRIAMYCIN PFS [Suspect]
     Indication: BREAST CANCER
     Dosage: 109 MG QD WEEK X4 IV
     Route: 042
     Dates: start: 20110517
  5. AVASTIN [Suspect]
     Indication: BREAST CANCER
     Dosage: 789 MG Q 3RD WEEK THEN QD WK IV
     Route: 042
     Dates: start: 20110216
  6. AVASTIN [Suspect]
     Indication: BREAST CANCER
     Dosage: 789 MG Q 3RD WEEK THEN QD WK IV
     Route: 042
     Dates: start: 20110309
  7. AVASTIN [Suspect]
     Indication: BREAST CANCER
     Dosage: 789 MG Q 3RD WEEK THEN QD WK IV
     Route: 042
     Dates: start: 20110329
  8. CYTOXAN [Suspect]
  9. ADRIAMYCIN PFS [Suspect]
     Indication: BREAST CANCER
     Dosage: 109 MG QD WEEK X4 IV
     Route: 042
     Dates: start: 20110517
  10. ADRIAMYCIN PFS [Suspect]
     Indication: BREAST CANCER
     Dosage: 109 MG QD WEEK X4 IV
     Route: 042
     Dates: start: 20110531
  11. ADRIAMYCIN PFS [Suspect]
     Indication: BREAST CANCER
     Dosage: 109 MG QD WEEK X4 IV
     Route: 042
     Dates: start: 20110628
  12. ADRIAMYCIN PFS [Suspect]
     Indication: BREAST CANCER
     Dosage: 109 MG QD WEEK X4 IV
     Route: 042
     Dates: start: 20110614
  13. POTASSIUM CHLORIDE [Concomitant]
  14. ZOSYN [Concomitant]
  15. MAGNESIUM SULFATE [Concomitant]
  16. CYTOXAN [Suspect]
     Indication: BREAST CANCER
     Dosage: 1094 MG QD WEEK X 4 IV
     Route: 042
     Dates: start: 20110517
  17. CYTOXAN [Suspect]
     Indication: BREAST CANCER
     Dosage: 1094 MG QD WEEK X 4 IV
     Route: 042
     Dates: start: 20110531
  18. CYTOXAN [Suspect]
     Indication: BREAST CANCER
     Dosage: 1094 MG QD WEEK X 4 IV
     Route: 042
     Dates: start: 20110628
  19. CYTOXAN [Suspect]
     Indication: BREAST CANCER
     Dosage: 1094 MG QD WEEK X 4 IV
     Route: 042
     Dates: start: 20110614
  20. CYTOXAN [Suspect]
  21. VANCOMYCIN [Concomitant]
  22. CYTOXAN [Suspect]
  23. AVASTIN [Suspect]

REACTIONS (6)
  - FEBRILE NEUTROPENIA [None]
  - CATHETER SITE DISCHARGE [None]
  - TENDERNESS [None]
  - PANCYTOPENIA [None]
  - CATHETER SITE PAIN [None]
  - CATHETER SITE ERYTHEMA [None]
